FAERS Safety Report 16052681 (Version 8)
Quarter: 2019Q3

REPORT INFORMATION
  Report Type: Report from Study
  Country: US (occurrence: US)
  Receive Date: 20190308
  Receipt Date: 20190924
  Transmission Date: 20191004
  Serious: Yes (Death, Hospitalization)
  Sender: FDA-Public Use
  Company Number: US-EISAI MEDICAL RESEARCH-EC-2019-053137

PATIENT
  Age: 77 Year
  Sex: Male
  Weight: 75.5 kg

DRUGS (26)
  1. LENVATINIB [Suspect]
     Active Substance: LENVATINIB
     Route: 048
     Dates: start: 20190108, end: 20190306
  2. LOSARTAN. [Concomitant]
     Active Substance: LOSARTAN
  3. ZINC. [Concomitant]
     Active Substance: ZINC
  4. ALOE VERA [Concomitant]
     Active Substance: ALOE VERA LEAF
  5. ABH [Concomitant]
  6. ASPIRIN. [Concomitant]
     Active Substance: ASPIRIN
  7. LENVATINIB [Suspect]
     Active Substance: LENVATINIB
     Indication: NEOPLASM
     Route: 048
     Dates: start: 20181213, end: 20190102
  8. PEMBROLIZUMAB. [Suspect]
     Active Substance: PEMBROLIZUMAB
     Indication: NEOPLASM
     Route: 041
     Dates: start: 20181213, end: 20190213
  9. LACTOBACILLUS ACIDOPHILUS [Concomitant]
     Active Substance: LACTOBACILLUS ACIDOPHILUS
  10. MULTIVITAMIN [Concomitant]
     Active Substance: VITAMINS
  11. TAMSULOSIN [Concomitant]
     Active Substance: TAMSULOSIN
  12. AMLODIPINE [Concomitant]
     Active Substance: AMLODIPINE BESYLATE
  13. ELIQUIS [Concomitant]
     Active Substance: APIXABAN
  14. OMGEA-3-DHA EPA-VITAMIN D3 [Concomitant]
  15. ZOLPIDEM [Concomitant]
     Active Substance: ZOLPIDEM TARTRATE
  16. NIFEDIPINE. [Concomitant]
     Active Substance: NIFEDIPINE
  17. ATORVASTATIN [Concomitant]
     Active Substance: ATORVASTATIN
  18. PANTOPRAZOLE [Concomitant]
     Active Substance: PANTOPRAZOLE
  19. PSEUDOEPHEDRINE. [Concomitant]
     Active Substance: PSEUDOEPHEDRINE HYDROCHLORIDE
  20. LEVOTHYROXINE. [Concomitant]
     Active Substance: LEVOTHYROXINE
  21. ASCORBIC ACID. [Concomitant]
     Active Substance: ASCORBIC ACID
  22. MUPIROCIN. [Concomitant]
     Active Substance: MUPIROCIN
  23. METOPROLOL TARTRATE. [Concomitant]
     Active Substance: METOPROLOL TARTRATE
  24. ISOSORBIDE MONONITRATE. [Concomitant]
     Active Substance: ISOSORBIDE MONONITRATE
  25. HYDROCODONE-ACETAMINOPHEN [Concomitant]
     Active Substance: ACETAMINOPHEN\HYDROCODONE
  26. MAGIC MOUTHWASH [Concomitant]
     Active Substance: DIPHENHYDRAMINE HYDROCHLORIDE\LIDOCAINE HYDROCHLORIDE\NYSTATIN

REACTIONS (5)
  - Cardiac failure [Fatal]
  - Acute myocardial infarction [Recovered/Resolved]
  - Dysphagia [Not Recovered/Not Resolved]
  - Acute kidney injury [Recovered/Resolved]
  - Dyspnoea [Recovered/Resolved]

NARRATIVE: CASE EVENT DATE: 20190306
